FAERS Safety Report 17013162 (Version 1)
Quarter: 2019Q4

REPORT INFORMATION
  Report Type: Spontaneous
  Country: HU (occurrence: HU)
  Receive Date: 20191110
  Receipt Date: 20191110
  Transmission Date: 20200122
  Serious: Yes (Death, Hospitalization, Other)
  Sender: FDA-Public Use
  Company Number: HU-B.I. PHARMACEUTICALS,INC./RIDGEFIELD-2019-BI-112655

PATIENT

DRUGS (1)
  1. OFEV [Suspect]
     Active Substance: NINTEDANIB
     Indication: IDIOPATHIC PULMONARY FIBROSIS
     Route: 065

REACTIONS (8)
  - Death [Fatal]
  - Toxic skin eruption [Unknown]
  - Lung transplant [Unknown]
  - Decreased appetite [Unknown]
  - Weight decreased [Unknown]
  - Idiopathic pulmonary fibrosis [Unknown]
  - Abdominal discomfort [Unknown]
  - Photosensitivity reaction [Unknown]
